FAERS Safety Report 4988890-5 (Version None)
Quarter: 2006Q2

REPORT INFORMATION
  Report Type: 
  Country: None (occurrence: None)
  Receive Date: 20060426
  Receipt Date: 20060419
  Transmission Date: 20061013
  Serious: Yes (Hospitalization, Other)
  Sender: FDA-Public Use
  Company Number: 2006021514

PATIENT
  Age: 10 Year
  Sex: Male

DRUGS (1)
  1. SINUTAB NON-DROWSY (PARACETAMOL, PSEUDOEPHEDRINE) [Suspect]
     Indication: NASAL CONGESTION
     Dosage: ORAL
     Route: 048
     Dates: start: 20060101, end: 20060301

REACTIONS (6)
  - CHEST DISCOMFORT [None]
  - CONVULSION [None]
  - DYSPEPSIA [None]
  - INFLAMMATION [None]
  - SPINAL DISORDER [None]
  - VOMITING [None]
